FAERS Safety Report 20322251 (Version 1)
Quarter: 2022Q1

REPORT INFORMATION
  Report Type: Other
  Country: US (occurrence: None)
  Receive Date: 20220111
  Receipt Date: 20220111
  Transmission Date: 20220423
  Serious: Yes (Hospitalization, Other)
  Sender: FDA-Public Use
  Company Number: US-ROCHE-2442108

PATIENT
  Age: 56 Year
  Sex: Female
  Weight: 68.463 kg

DRUGS (5)
  1. OCREVUS [Suspect]
     Active Substance: OCRELIZUMAB
     Indication: Multiple sclerosis
     Dosage: ON 02/OCT/2019 HAD RECEIVED THE SECOND INFUSION.?ON DAY 1 THEN ON DAY 15?DATE OF TREATMENT: 16/SEP/2
     Route: 042
     Dates: start: 2019, end: 20210615
  2. OCREVUS [Suspect]
     Active Substance: OCRELIZUMAB
     Indication: Primary progressive multiple sclerosis
     Route: 042
     Dates: start: 201910, end: 20210615
  3. HYDROCHLOROTHIAZIDE [Concomitant]
     Active Substance: HYDROCHLOROTHIAZIDE
     Indication: Hypertension
     Route: 048
     Dates: start: 2018
  4. GABAPENTIN [Concomitant]
     Active Substance: GABAPENTIN
     Indication: Nerve injury
     Dosage: 2 CAPSULES OF 300 MG IN THE MORNING AND EVENING
     Route: 048
     Dates: start: 20190702
  5. LOSARTAN [Concomitant]
     Active Substance: LOSARTAN
     Indication: Hypertension
     Route: 048
     Dates: start: 20200617

REACTIONS (8)
  - Multiple sclerosis relapse [Recovered/Resolved]
  - Magnetic resonance imaging head abnormal [Not Recovered/Not Resolved]
  - Urinary tract infection [Recovered/Resolved]
  - Nausea [Unknown]
  - Pruritus [Unknown]
  - Alopecia [Not Recovered/Not Resolved]
  - Trigeminal neuralgia [Not Recovered/Not Resolved]
  - Hair colour changes [Not Recovered/Not Resolved]

NARRATIVE: CASE EVENT DATE: 20191001
